FAERS Safety Report 9175199 (Version 1)
Quarter: 2013Q1

REPORT INFORMATION
  Report Type: Spontaneous
  Country: US (occurrence: US)
  Receive Date: 20130320
  Receipt Date: 20130320
  Transmission Date: 20140127
  Serious: No
  Sender: FDA-Public Use
  Company Number: US-JNJFOC-20130110769

PATIENT
  Sex: 0
  Weight: 1.34 kg

DRUGS (2)
  1. FENTANYL TRANSDERMAL SYSTEM [Suspect]
     Indication: DRUG WITHDRAWAL SYNDROME NEONATAL
     Route: 062
  2. MORPHINE [Concomitant]
     Indication: DRUG WITHDRAWAL SYNDROME NEONATAL
     Route: 065

REACTIONS (1)
  - Drug administered to patient of inappropriate age [Unknown]
